FAERS Safety Report 21649600 (Version 1)
Quarter: 2022Q4

REPORT INFORMATION
  Report Type: Report from Study
  Country: US (occurrence: US)
  Receive Date: 20221128
  Receipt Date: 20221128
  Transmission Date: 20230113
  Serious: No
  Sender: FDA-Public Use
  Company Number: US-ABBVIE-4181325

PATIENT
  Age: 65 Year
  Sex: Female

DRUGS (1)
  1. RINVOQ [Suspect]
     Active Substance: UPADACITINIB
     Indication: Product used for unknown indication
     Dosage: THE DRUG STOP DATE WAS 25 OCT 2022.?FORM STRENGTH: 15 MILLIGRAM
     Route: 048

REACTIONS (2)
  - Muscle spasms [Unknown]
  - Influenza [Unknown]

NARRATIVE: CASE EVENT DATE: 20221024
